FAERS Safety Report 20221333 (Version 1)
Quarter: 2021Q4

REPORT INFORMATION
  Report Type: Report from Study
  Country: EG (occurrence: EG)
  Receive Date: 20211223
  Receipt Date: 20211223
  Transmission Date: 20220304
  Serious: Yes (Other)
  Sender: FDA-Public Use
  Company Number: EG-NOVARTISPH-NVSC2021EG288313

PATIENT
  Age: 63 Year
  Sex: Female

DRUGS (6)
  1. HYRIMOZ [Suspect]
     Active Substance: ADALIMUMAB-ADAZ
     Indication: Ankylosing spondylitis
     Dosage: 40 MG, Q2W (EVERY 15 DAYS FOR 3 MONTHS THEN PATIENT WOULD FOLLOW UP WITH THE HCP IF DOSE INCREASED O
     Route: 058
     Dates: start: 20211206
  2. METHOTREXATE [Concomitant]
     Active Substance: METHOTREXATE
     Indication: Ankylosing spondylitis
     Dosage: 1 PEN
     Route: 065
     Dates: start: 202107
  3. ISOPTIN [Concomitant]
     Active Substance: VERAPAMIL HYDROCHLORIDE
     Indication: Arrhythmia
     Dosage: UNK UNK, BID
     Route: 065
     Dates: start: 2019
  4. BON ONE [Concomitant]
     Indication: Vitamin supplementation
     Dosage: 1 DOSAGE FORM, QD (5 % MICROGRAM)
     Route: 065
     Dates: start: 202107
  5. SULOPRED [Concomitant]
     Indication: Ankylosing spondylitis
     Dosage: 5 MG, QOD
     Route: 065
     Dates: start: 202107
  6. FOLIC ACID [Concomitant]
     Active Substance: FOLIC ACID
     Indication: Vitamin supplementation
     Dosage: 6QD (EVERY DAY EXCEPT THURSADY)
     Route: 065
     Dates: start: 202107

REACTIONS (7)
  - Feeling cold [Recovered/Resolved]
  - Decreased appetite [Recovering/Resolving]
  - Hypotension [Recovering/Resolving]
  - Hypoglycaemia [Recovering/Resolving]
  - Dizziness [Recovering/Resolving]
  - Pyrexia [Recovered/Resolved]
  - Vomiting [Recovered/Resolved]

NARRATIVE: CASE EVENT DATE: 20211209
